FAERS Safety Report 9370587 (Version 1)
Quarter: 2013Q2

REPORT INFORMATION
  Report Type: Report from Study
  Country: CA (occurrence: CA)
  Receive Date: 20130626
  Receipt Date: 20130626
  Transmission Date: 20140414
  Serious: Yes (Other)
  Sender: FDA-Public Use
  Company Number: CA-ABBOTT-13P-028-1109487-00

PATIENT
  Age: 86 Year
  Sex: Male
  Weight: 66.74 kg

DRUGS (2)
  1. LUPRON DEPOT [Suspect]
     Indication: PROSTATE CANCER
     Route: 030
     Dates: start: 20130325
  2. CASODEX [Concomitant]
     Indication: PRODUCT USED FOR UNKNOWN INDICATION
     Dates: start: 201303

REACTIONS (11)
  - Urinary retention [Recovered/Resolved]
  - Urinary bladder haemorrhage [Unknown]
  - Post procedural haemorrhage [Unknown]
  - Prostatic haemorrhage [Unknown]
  - Anaesthetic complication [Unknown]
  - Transurethral resection syndrome [Unknown]
  - Dysuria [Unknown]
  - Benign prostatic hyperplasia [Unknown]
  - Inflammation [Unknown]
  - Oedema peripheral [Unknown]
  - Haematuria [Recovered/Resolved]
